FAERS Safety Report 6132390-6 (Version None)
Quarter: 2009Q1

REPORT INFORMATION
  Report Type: 
  Country: None (occurrence: None)
  Receive Date: 20090325
  Receipt Date: 20090318
  Transmission Date: 20090719
  Serious: Yes (Other)
  Sender: FDA-Public Use
  Company Number: PHHY2009DE10242

PATIENT
  Age: 67 Year
  Sex: Male

DRUGS (3)
  1. DIOVAN [Suspect]
     Dosage: 160 MG
  2. ZOCOR [Concomitant]
  3. TRENANTONE [Concomitant]
     Dosage: 1 DF, Q3MO
     Route: 051

REACTIONS (2)
  - BLOOD PRESSURE INCREASED [None]
  - DRUG DISPENSING ERROR [None]
